FAERS Safety Report 6589656-5 (Version None)
Quarter: 2010Q1

REPORT INFORMATION
  Report Type: 
  Country: None (occurrence: None)
  Receive Date: 20100218
  Receipt Date: 20100217
  Transmission Date: 20100710
  Serious: Yes (Hospitalization, Other)
  Sender: FDA-Public Use
  Company Number: US-ASTRAZENECA-2009SE15835

PATIENT
  Age: 49 Year
  Sex: Female
  Weight: 104.3 kg

DRUGS (7)
  1. SEROQUEL [Suspect]
     Indication: BIPOLAR DISORDER
     Route: 048
     Dates: start: 20040201, end: 20090331
  2. SEROQUEL [Suspect]
     Indication: SCHIZOPHRENIA
     Route: 048
     Dates: start: 20040201, end: 20090331
  3. SEROQUEL [Suspect]
     Indication: DEPRESSION
     Route: 048
     Dates: start: 20040201, end: 20090331
  4. CLOZARIL [Concomitant]
     Dates: start: 20090415
  5. RISPERDAL [Concomitant]
     Dates: start: 20070301
  6. TRAZODONE HCL [Concomitant]
  7. GEODON [Concomitant]
     Dates: start: 20090415

REACTIONS (7)
  - BLOOD CHOLESTEROL INCREASED [None]
  - BLOOD TRIGLYCERIDES INCREASED [None]
  - DIABETIC KETOACIDOSIS [None]
  - HYPERLIPIDAEMIA [None]
  - NERVOUS SYSTEM DISORDER [None]
  - OBESITY [None]
  - TYPE 2 DIABETES MELLITUS [None]
